FAERS Safety Report 5356602-1 (Version None)
Quarter: 2007Q2

REPORT INFORMATION
  Report Type: 
  Country: None (occurrence: None)
  Receive Date: 20070614
  Receipt Date: 20070611
  Transmission Date: 20071010
  Serious: Yes (Hospitalization, Other)
  Sender: FDA-Public Use
  Company Number: PHEH2007US05982

PATIENT
  Age: 50 Year
  Sex: Male

DRUGS (7)
  1. TRICOR [Concomitant]
     Indication: HYPERTRIGLYCERIDAEMIA
     Dosage: 145 MG, QD
     Route: 048
  2. WELLBUTRIN [Concomitant]
     Route: 048
  3. REMERON [Concomitant]
     Indication: DEPRESSION
     Dosage: 45 MG, QD
  4. FLEXERIL [Concomitant]
     Route: 048
  5. ADVAIR DISKUS 100/50 [Concomitant]
  6. ACIPHEX [Concomitant]
     Indication: GASTROOESOPHAGEAL REFLUX DISEASE
     Dosage: 20 MG, QD
     Route: 048
  7. ZELNORM [Suspect]
     Indication: CONSTIPATION
     Dosage: 6 MG, QD AT BEDTIME
     Route: 048
     Dates: start: 20060701, end: 20070412

REACTIONS (6)
  - ANGIOPLASTY [None]
  - ARTERIOGRAM CORONARY [None]
  - CATHETERISATION CARDIAC [None]
  - CORONARY ARTERY OCCLUSION [None]
  - MYOCARDIAL INFARCTION [None]
  - STENT PLACEMENT [None]
